FAERS Safety Report 7464180-6 (Version None)
Quarter: 2011Q2

REPORT INFORMATION
  Report Type: 
  Country: None (occurrence: None)
  Receive Date: 20110506
  Receipt Date: 20110428
  Transmission Date: 20111010
  Serious: Yes (Other)
  Sender: FDA-Public Use
  Company Number: GB-ASTRAZENECA-2011SE24683

PATIENT
  Age: 78 Year
  Sex: Male

DRUGS (3)
  1. OMEPRAZOLE [Suspect]
     Route: 048
  2. GAVISCON [Suspect]
  3. NEXIUM [Concomitant]

REACTIONS (4)
  - GASTRIC HAEMORRHAGE [None]
  - HAEMATEMESIS [None]
  - DRUG INEFFECTIVE [None]
  - DYSPEPSIA [None]
